FAERS Safety Report 14688770 (Version 2)
Quarter: 2018Q2

REPORT INFORMATION
  Report Type: Spontaneous
  Country: JP (occurrence: JP)
  Receive Date: 20180328
  Receipt Date: 20180416
  Transmission Date: 20180711
  Serious: Yes (Hospitalization, Other)
  Sender: FDA-Public Use
  Company Number: JP-PURDUE-GBR-2018-0054409

PATIENT
  Sex: Male

DRUGS (3)
  1. OXINORM (OXYCODONE HYDROCHLORIDE) [Suspect]
     Active Substance: OXYCODONE HYDROCHLORIDE
     Indication: PRODUCT USED FOR UNKNOWN INDICATION
     Dosage: UNK [5 TIMES/DAY, IN THE DAYTIME]
     Route: 048
     Dates: start: 201705, end: 201802
  2. OXYCONTIN [Suspect]
     Active Substance: OXYCODONE HYDROCHLORIDE
     Indication: PRODUCT USED FOR UNKNOWN INDICATION
     Dosage: 2 DF, DAILY
     Route: 048
     Dates: start: 201705, end: 201802
  3. SOLANAX [Concomitant]
     Active Substance: ALPRAZOLAM
     Dosage: 2 DF, NOCTE [STRENGTH 0.4 MG]
     Route: 048

REACTIONS (4)
  - Intentional product misuse [Unknown]
  - Confusional state [Unknown]
  - Delirium [Unknown]
  - Depression [Unknown]
